FAERS Safety Report 7454485-7 (Version None)
Quarter: 2011Q2

REPORT INFORMATION
  Report Type: 
  Country: None (occurrence: None)
  Receive Date: 20110503
  Receipt Date: 20110419
  Transmission Date: 20111010
  Serious: Yes (Other)
  Sender: FDA-Public Use
  Company Number: US-JNJFOC-20090102117

PATIENT
  Sex: Female
  Weight: 31 kg

DRUGS (21)
  1. FOLIC ACID [Concomitant]
     Indication: INFLAMMATORY BOWEL DISEASE
  2. ANTIHISTAMINES [Concomitant]
  3. ACETAMINOPHEN [Concomitant]
     Indication: PREMEDICATION
  4. ACETAMINOPHEN [Concomitant]
  5. INFLIXIMAB [Suspect]
     Route: 042
  6. INFLIXIMAB [Suspect]
     Route: 042
  7. INFLIXIMAB [Suspect]
     Route: 042
  8. VITAMINS [Concomitant]
     Indication: INFLAMMATORY BOWEL DISEASE
  9. STEROIDS [Concomitant]
  10. ANTIHISTAMINES [Concomitant]
  11. STEROIDS [Concomitant]
  12. ANTIHISTAMINES [Concomitant]
     Indication: PREMEDICATION
  13. GROWTH HORMONE [Concomitant]
     Indication: PRODUCT USED FOR UNKNOWN INDICATION
  14. ACETAMINOPHEN [Concomitant]
  15. INFLIXIMAB [Suspect]
     Route: 042
  16. STEROIDS [Concomitant]
  17. ANTIHISTAMINES [Concomitant]
  18. ACETAMINOPHEN [Concomitant]
  19. INFLIXIMAB [Suspect]
     Indication: CROHN'S DISEASE
     Route: 042
  20. INFLIXIMAB [Suspect]
     Route: 042
  21. STEROIDS [Concomitant]
     Indication: PREMEDICATION

REACTIONS (3)
  - SKIN EXFOLIATION [None]
  - STAPHYLOCOCCAL INFECTION [None]
  - RASH [None]
